FAERS Safety Report 9205178 (Version 1)
Quarter: 2013Q2

REPORT INFORMATION
  Report Type: Spontaneous
  Country: US (occurrence: None)
  Receive Date: 20130401
  Receipt Date: 20130401
  Transmission Date: 20140414
  Serious: Yes (Hospitalization)
  Sender: FDA-Public Use
  Company Number: None

PATIENT
  Age: 71 Year
  Sex: Female
  Weight: 58 kg

DRUGS (12)
  1. LEVETIRACETAM [Suspect]
     Indication: CONVULSION
     Dosage: PRIOR TO ADMISSION
     Route: 048
  2. ACETAMINOPHEN [Concomitant]
  3. CALCIUM CARBONATE [Concomitant]
  4. CITALOPRAM [Concomitant]
  5. DIVALPROEX ER [Concomitant]
  6. GABAPENTIN [Concomitant]
  7. LEVOTHYROXINE [Concomitant]
  8. LORAZEPAM [Concomitant]
  9. QUETIAPINE [Concomitant]
  10. TRIAMCINOLON LOTION [Concomitant]
  11. ERGOCALCIFEROL [Concomitant]
  12. ZONISAMIDE [Concomitant]

REACTIONS (2)
  - Mental status changes [None]
  - Renal failure acute [None]
